FAERS Safety Report 5973148-8 (Version None)
Quarter: 2008Q4

REPORT INFORMATION
  Report Type: 
  Country: None (occurrence: None)
  Receive Date: 20081201
  Receipt Date: 20081124
  Transmission Date: 20090506
  Serious: Yes (Hospitalization)
  Sender: FDA-Public Use
  Company Number: FR-ASTRAZENECA-2008CG01735

PATIENT
  Age: 25511 Day
  Sex: Male

DRUGS (10)
  1. NEXIUM [Suspect]
     Route: 048
     Dates: start: 20080508
  2. FORLAX [Suspect]
     Route: 048
     Dates: start: 20080513
  3. APROVEL [Suspect]
     Indication: HYPERTENSION
     Route: 048
     Dates: start: 20080508
  4. MYOLASTAN [Suspect]
     Route: 048
     Dates: start: 20080508, end: 20080601
  5. ZOLPIDEM [Suspect]
     Route: 048
     Dates: start: 20080508
  6. AERIUS [Concomitant]
     Route: 048
     Dates: start: 20080529
  7. PROZAC [Concomitant]
     Indication: DEPRESSION
     Route: 048
  8. AMLOD [Concomitant]
     Indication: HYPERTENSION
     Route: 048
  9. DAFALGAN [Concomitant]
     Indication: PAIN
     Dosage: ONE TO THREE GRAMS DAILY AS REQUIRED
     Route: 048
  10. RIVOTRIL [Concomitant]
     Indication: INSOMNIA
     Route: 048

REACTIONS (1)
  - DERMATITIS EXFOLIATIVE [None]
